FAERS Safety Report 12952014 (Version 1)
Quarter: 2016Q4

REPORT INFORMATION
  Report Type: Spontaneous
  Country: US (occurrence: US)
  Receive Date: 20161117
  Receipt Date: 20161117
  Transmission Date: 20170207
  Serious: Yes (Other)
  Sender: FDA-Public Use
  Company Number: US-NOVOPROD-488718

PATIENT
  Age: 72 Year
  Sex: Male
  Weight: 99.77 kg

DRUGS (4)
  1. LANTUS [Concomitant]
     Active Substance: INSULIN GLARGINE
     Indication: TYPE 2 DIABETES MELLITUS
  2. NOVOLOG [Suspect]
     Active Substance: INSULIN ASPART
     Indication: TYPE 2 DIABETES MELLITUS
     Dosage: 45 U, BID
     Route: 058
     Dates: start: 2015
  3. NOVOLOG [Suspect]
     Active Substance: INSULIN ASPART
     Dosage: 40 UNITS AT 10 AM  AND THEN 30 UNITS AROUND 3 PM
     Route: 058
     Dates: start: 20160415, end: 20160415
  4. NOVOLOG [Suspect]
     Active Substance: INSULIN ASPART
     Dosage: 10 UNK, UNK
     Route: 058
     Dates: start: 20160415, end: 20160415

REACTIONS (1)
  - Blood glucose increased [Not Recovered/Not Resolved]

NARRATIVE: CASE EVENT DATE: 20160415
